FAERS Safety Report 10558184 (Version 1)
Quarter: 2014Q4

REPORT INFORMATION
  Report Type: Spontaneous
  Country: CH (occurrence: CH)
  Receive Date: 20141031
  Receipt Date: 20141031
  Transmission Date: 20150529
  Serious: Yes (Hospitalization)
  Sender: FDA-Public Use
  Company Number: CH-TEVA-517379ISR

PATIENT
  Age: 74 Year
  Sex: Male

DRUGS (10)
  1. ASPIRIN CARDIO [Concomitant]
     Active Substance: ASPIRIN
     Dosage: CONTINUING
     Route: 065
  2. LANTUS [Suspect]
     Active Substance: INSULIN GLARGINE
     Dosage: 20 IU (INTERNATIONAL UNIT) DAILY;
     Route: 058
     Dates: end: 20140926
  3. CO-APROVEL [Concomitant]
     Active Substance: HYDROCHLOROTHIAZIDE\IRBESARTAN
     Dosage: CONTINUING
     Route: 065
  4. METFORMIN-MEPHA 500 LACTAB [Suspect]
     Active Substance: METFORMIN HYDROCHLORIDE
     Dosage: 1000 MILLIGRAM DAILY;
     Route: 048
  5. AMLODIPIN [Concomitant]
     Active Substance: AMLODIPINE BESYLATE
     Dosage: CONTINUING
     Route: 065
  6. SAROTEN RETARD [Concomitant]
     Active Substance: AMITRIPTYLINE
     Dosage: CONTINUING
     Route: 065
  7. NOVONORM 1.0 MG TABLETTEN [Suspect]
     Active Substance: REPAGLINIDE
     Dosage: 3 MILLIGRAM DAILY;
     Route: 048
  8. CONCOR [Concomitant]
     Active Substance: BISOPROLOL FUMARATE
     Dosage: CONTINUING
     Route: 065
  9. CARDURA [Concomitant]
     Active Substance: DOXAZOSIN MESYLATE
     Dosage: CONTINUING
     Route: 065
  10. VALIUM [Concomitant]
     Active Substance: DIAZEPAM
     Dosage: CONTINUING
     Route: 065

REACTIONS (6)
  - Tachycardia [Recovered/Resolved]
  - Tremor [Recovered/Resolved]
  - Hyperhidrosis [Recovered/Resolved]
  - Malaise [Recovered/Resolved]
  - Hypoglycaemia [Recovered/Resolved]
  - Confusional state [Recovered/Resolved]

NARRATIVE: CASE EVENT DATE: 20140926
